FAERS Safety Report 16370901 (Version 2)
Quarter: 2025Q3

REPORT INFORMATION
  Report Type: Spontaneous
  Country: EU (occurrence: EU)
  Receive Date: 20190530
  Receipt Date: 20250912
  Transmission Date: 20251020
  Serious: Yes (Other)
  Sender: AUROBINDO
  Company Number: EU-AUROBINDO-AUR-APL-2019-029968

PATIENT
  Sex: Male

DRUGS (8)
  1. GEMCITABINE [Suspect]
     Active Substance: GEMCITABINE
     Indication: Follicular thyroid cancer
     Route: 065
     Dates: start: 201511, end: 201601
  2. GEMCITABINE [Suspect]
     Active Substance: GEMCITABINE
     Route: 065
     Dates: start: 201711, end: 201802
  3. GEMCITABINE [Suspect]
     Active Substance: GEMCITABINE
     Route: 065
     Dates: start: 201806
  4. OXALIPLATIN [Suspect]
     Active Substance: OXALIPLATIN
     Indication: Follicular thyroid cancer
     Route: 065
     Dates: start: 201511, end: 201601
  5. OXALIPLATIN [Suspect]
     Active Substance: OXALIPLATIN
     Route: 065
     Dates: start: 201711, end: 201802
  6. OXALIPLATIN [Suspect]
     Active Substance: OXALIPLATIN
     Route: 065
     Dates: start: 201806
  7. SUNITINIB [Concomitant]
     Active Substance: SUNITINIB
     Indication: Follicular thyroid cancer
     Route: 065
     Dates: start: 2015
  8. SUNITINIB [Concomitant]
     Active Substance: SUNITINIB
     Route: 065
     Dates: start: 201511, end: 201605

REACTIONS (2)
  - Neurotoxicity [Unknown]
  - Off label use [Not Recovered/Not Resolved]
